FAERS Safety Report 6936015-9 (Version None)
Quarter: 2010Q3

REPORT INFORMATION
  Report Type: 
  Country: None (occurrence: None)
  Receive Date: 20100819
  Receipt Date: 20100819
  Transmission Date: 20110219
  Serious: Yes (Hospitalization)
  Sender: FDA-Public Use
  Company Number: None

PATIENT
  Age: 83 Year
  Sex: Male
  Weight: 103.4201 kg

DRUGS (4)
  1. METHOTREXATE [Suspect]
     Indication: BLADDER CANCER
     Dosage: FIRST 3 WERE GIVEN IVP
     Dates: end: 20100726
  2. VINBLASTINE SULFATE [Suspect]
     Indication: BLADDER CANCER
     Dosage: FIRST 3 WERE GIVEN IVP
     Route: 042
     Dates: start: 20100726
  3. DOXORUBICIN HCL [Suspect]
  4. CISPLATIN [Suspect]
     Dosage: IV
     Route: 042

REACTIONS (1)
  - BRADYCARDIA [None]
